FAERS Safety Report 24465393 (Version 1)
Quarter: 2024Q4

REPORT INFORMATION
  Report Type: Report from Study
  Country: US (occurrence: US)
  Receive Date: 20241018
  Receipt Date: 20241018
  Transmission Date: 20250114
  Serious: No
  Sender: ROCHE
  Company Number: US-ROCHE-3527887

PATIENT
  Age: 57 Year
  Sex: Female
  Weight: 110.35 kg

DRUGS (16)
  1. XOLAIR [Suspect]
     Active Substance: OMALIZUMAB
     Indication: Asthma
     Dosage: LAST INJECTION DATE: 16/FEB/2024
     Route: 058
  2. XOLAIR [Suspect]
     Active Substance: OMALIZUMAB
  3. ERGOCALCIFEROL [Concomitant]
     Active Substance: ERGOCALCIFEROL
  4. VITAMIN B12 [Concomitant]
     Active Substance: CYANOCOBALAMIN
  5. TRAZODONE [Concomitant]
     Active Substance: TRAZODONE HYDROCHLORIDE
  6. TOPIRAMATE [Concomitant]
     Active Substance: TOPIRAMATE
  7. SYMBICORT [Concomitant]
     Active Substance: BUDESONIDE\FORMOTEROL FUMARATE DIHYDRATE
  8. SPIRIVA [Concomitant]
     Active Substance: TIOTROPIUM BROMIDE MONOHYDRATE
  9. PROZAC [Concomitant]
     Active Substance: FLUOXETINE HYDROCHLORIDE
  10. PANTOPRAZOLE [Concomitant]
     Active Substance: PANTOPRAZOLE
  11. GABAPENTIN [Concomitant]
     Active Substance: GABAPENTIN
  12. FLONASE [Concomitant]
     Active Substance: FLUTICASONE PROPIONATE
  13. FLUCONAZOLE [Concomitant]
     Active Substance: FLUCONAZOLE
  14. HYDROXYZINE [Concomitant]
     Active Substance: HYDROXYZINE HYDROCHLORIDE
  15. IBUPROFEN [Concomitant]
     Active Substance: IBUPROFEN
  16. IPRATROPIUM BROMIDE [Concomitant]
     Active Substance: IPRATROPIUM BROMIDE

REACTIONS (14)
  - Nasal congestion [Unknown]
  - Rhinorrhoea [Unknown]
  - Sputum purulent [Unknown]
  - Dyspnoea [Unknown]
  - Nausea [Unknown]
  - Vomiting [Unknown]
  - Arthralgia [Unknown]
  - Joint swelling [Unknown]
  - Musculoskeletal stiffness [Unknown]
  - Headache [Unknown]
  - Depression [Unknown]
  - Obstructive sleep apnoea syndrome [Unknown]
  - Obesity [Unknown]
  - Off label use [Unknown]
